FAERS Safety Report 20529726 (Version 2)
Quarter: 2022Q1

REPORT INFORMATION
  Report Type: Spontaneous
  Country: JP (occurrence: JP)
  Receive Date: 20220301
  Receipt Date: 20220325
  Transmission Date: 20220423
  Serious: Yes (Other)
  Sender: FDA-Public Use
  Company Number: JP-MTPC-MTPC2022-0005033

PATIENT
  Age: 16 Year
  Sex: Male

DRUGS (1)
  1. EDARAVONE [Suspect]
     Active Substance: EDARAVONE
     Indication: Acute encephalitis with refractory, repetitive partial seizures
     Dosage: UNK
     Route: 042

REACTIONS (5)
  - Venous thrombosis [Unknown]
  - Ileus paralytic [Unknown]
  - Infection [Unknown]
  - Acute hepatic failure [Unknown]
  - Off label use [Unknown]
